FAERS Safety Report 13544419 (Version 1)
Quarter: 2017Q2

REPORT INFORMATION
  Report Type: Spontaneous
  Country: US (occurrence: US)
  Receive Date: 20170515
  Receipt Date: 20170515
  Transmission Date: 20170830
  Serious: No
  Sender: FDA-Public Use
  Company Number: US-B.I. PHARMACEUTICALS,INC./RIDGEFIELD-2017-BI-026109

PATIENT
  Age: 77 Year
  Sex: Male

DRUGS (1)
  1. AGGRENOX [Suspect]
     Active Substance: ASPIRIN\DIPYRIDAMOLE
     Indication: CEREBROVASCULAR ACCIDENT
     Dosage: TWICE DAILY;  FORM STRENGTH/UNIT DOSE: 25 MG/200 MG DAILY DOSE: 50MG/400MG FORMULATION: CAPSULE? ADM
     Route: 048
     Dates: start: 20170222

REACTIONS (4)
  - Pruritus [Not Recovered/Not Resolved]
  - Stenosis [Recovered/Resolved]
  - Scratch [Not Recovered/Not Resolved]
  - Headache [Recovered/Resolved]

NARRATIVE: CASE EVENT DATE: 20170222
